FAERS Safety Report 7184058-5 (Version None)
Quarter: 2010Q4

REPORT INFORMATION
  Report Type: 
  Country: None (occurrence: None)
  Receive Date: 20101222
  Receipt Date: 20101209
  Transmission Date: 20110411
  Serious: Yes (Hospitalization)
  Sender: FDA-Public Use
  Company Number: PHHY2010US83986

PATIENT
  Sex: Female

DRUGS (4)
  1. DIOVAN HCT [Suspect]
     Dosage: 320/25 MG(1 PER DAY)
  2. ATENOLOL [Concomitant]
     Dosage: 2 DF
  3. TERAZOSIN HCL [Concomitant]
  4. VYTORIN [Concomitant]

REACTIONS (2)
  - HYPERTENSION [None]
  - PANIC ATTACK [None]
